FAERS Safety Report 14656977 (Version 1)
Quarter: 2018Q1

REPORT INFORMATION
  Report Type: Spontaneous
  Country: US (occurrence: US)
  Receive Date: 20180319
  Receipt Date: 20180319
  Transmission Date: 20180509
  Serious: No
  Sender: FDA-Public Use
  Company Number: US-SA-2017SA233115

PATIENT
  Age: 72 Year
  Sex: Male

DRUGS (1)
  1. NASACORT ALLERGY 24HR [Suspect]
     Active Substance: TRIAMCINOLONE ACETONIDE
     Indication: NASAL CONGESTION
     Dosage: START DAYE WAS 4 DAYS AGO
     Route: 045
     Dates: start: 20171113, end: 20171117

REACTIONS (6)
  - Chest pain [Unknown]
  - Therapeutic response decreased [Unknown]
  - Nasal congestion [Unknown]
  - Condition aggravated [Unknown]
  - Cough [Unknown]
  - Rhinorrhoea [Unknown]
